FAERS Safety Report 6475487 (Version 2)
Quarter: 2020Q2

REPORT INFORMATION
  Report Type: Spontaneous
  Country: IN (occurrence: IN)
  Receive Date: 20071127
  Receipt Date: 20200410
  Transmission Date: 20200714
  Serious: Yes (Hospitalization)
  Sender: FDA-Public Use
  Company Number: PHBS2007IN19783

PATIENT
  Age: 29 Year
  Sex: Male

DRUGS (2)
  1. ANTIVENIN [Suspect]
     Active Substance: BLACK WIDOW SPIDER (LATRODECTUS MACTANS) IMMUNE GLOBULIN ANTIVENIN (EQUINE)
     Indication: PRODUCT USED FOR UNKNOWN INDICATION
     Dosage: 2 DF
     Route: 042
  2. DICLOFENAC [Suspect]
     Active Substance: DICLOFENAC
     Indication: PRODUCT USED FOR UNKNOWN INDICATION
     Route: 030

REACTIONS (6)
  - Injection site vesicles [Recovered/Resolved]
  - Embolia cutis medicamentosa [Recovered/Resolved]
  - Injection site necrosis [Recovered/Resolved]
  - Injection site pain [Recovered/Resolved]
  - Injection site ulcer [Recovered/Resolved with Sequelae]
  - Injection site scar [Not Recovered/Not Resolved]
